FAERS Safety Report 15334718 (Version 1)
Quarter: 2018Q3

REPORT INFORMATION
  Report Type: Spontaneous
  Country: US (occurrence: US)
  Receive Date: 20180827
  Receipt Date: 20180827
  Transmission Date: 20181010
  Serious: Yes (Other)
  Sender: FDA-Public Use
  Company Number: None

PATIENT
  Age: 66 Year
  Sex: Female
  Weight: 106.2 kg

DRUGS (5)
  1. GLYBURIDE. [Concomitant]
     Active Substance: GLYBURIDE
  2. LEVEMIR [Concomitant]
     Active Substance: INSULIN DETEMIR
  3. LISINIPRIL [Concomitant]
     Active Substance: LISINOPRIL
  4. FLOURESCIEN [Suspect]
     Active Substance: FLUORESCEIN
     Indication: OPHTHALMOLOGICAL EXAMINATION
     Dates: start: 20180809
  5. XARELTO [Concomitant]
     Active Substance: RIVAROXABAN

REACTIONS (2)
  - Chemical burn of skin [None]
  - Wrong technique in product usage process [None]

NARRATIVE: CASE EVENT DATE: 20180809
